FAERS Safety Report 23448370 (Version 1)
Quarter: 2024Q1

REPORT INFORMATION
  Report Type: Spontaneous
  Country: US (occurrence: US)
  Receive Date: 20240127
  Receipt Date: 20240127
  Transmission Date: 20240410
  Serious: No
  Sender: FDA-Public Use
  Company Number: US-ABBVIE-5598335

PATIENT
  Sex: Female

DRUGS (1)
  1. LOESTRIN NOS [Suspect]
     Active Substance: ETHINYL ESTRADIOL\NORETHINDRONE ACETATE
     Indication: Endometriosis
     Dosage: FORM STRENGTH: NORETHINDRONE ACETATE 1.5MG;ETHINYL ESTRADIOL 0.03MG TAB
     Route: 065

REACTIONS (2)
  - Hypomenorrhoea [Unknown]
  - Endometriosis [Unknown]
